FAERS Safety Report 8586580 (Version 5)
Quarter: 2014Q2

REPORT INFORMATION
  Report Type: Report from Study
  Country: CH (occurrence: CH)
  Receive Date: 20120530
  Receipt Date: 20140404
  Transmission Date: 20141212
  Serious: Yes (Death, Other)
  Sender: FDA-Public Use
  Company Number: CH-ROCHE-1070206

PATIENT
  Sex: 0

DRUGS (10)
  1. RITUXIMAB [Suspect]
     Indication: SYSTEMIC SCLEROSIS
     Route: 065
  2. METHOTREXATE [Concomitant]
  3. AZATHIOPRINE [Concomitant]
  4. PREDNISONE [Concomitant]
  5. MYCOPHENOLATE MOFETIL [Concomitant]
  6. CYCLOPHOSPHAMIDE [Concomitant]
  7. SULFASALAZINE [Concomitant]
  8. LEFLUNOMIDE [Concomitant]
  9. COLCHICINE [Concomitant]
  10. TACROLIMUS [Concomitant]

REACTIONS (4)
  - Pneumonia [Fatal]
  - Cardiac failure [Fatal]
  - Infection [Unknown]
  - Serum sickness [Unknown]
